FAERS Safety Report 12137141 (Version 2)
Quarter: 2016Q2

REPORT INFORMATION
  Report Type: Report from Study
  Country: US (occurrence: US)
  Receive Date: 20160302
  Receipt Date: 20160626
  Transmission Date: 20160815
  Serious: Yes (Death, Hospitalization, Other)
  Sender: FDA-Public Use
  Company Number: PHEH2016US005037

PATIENT
  Age: 93 Year
  Sex: Female
  Weight: 58.97 kg

DRUGS (7)
  1. ATENOLOL. [Concomitant]
     Active Substance: ATENOLOL
     Indication: PRODUCT USED FOR UNKNOWN INDICATION
     Dosage: 25 MG, QD
     Route: 048
  2. CANDESARTAN [Concomitant]
     Active Substance: CANDESARTAN
     Indication: PRODUCT USED FOR UNKNOWN INDICATION
     Dosage: 2 DF, BID
     Route: 048
  3. VOTRIENT [Suspect]
     Active Substance: PAZOPANIB HYDROCHLORIDE
     Indication: METASTATIC RENAL CELL CARCINOMA
     Dosage: 1 DF, BID (600 MG DAILY)
     Route: 048
     Dates: start: 20160126, end: 20160217
  4. COMPAZINE [Concomitant]
     Active Substance: PROCHLORPERAZINE MALEATE
     Indication: PRODUCT USED FOR UNKNOWN INDICATION
     Dosage: 10 MG, PRN
     Route: 048
  5. MAGNESIUM OXIDE. [Concomitant]
     Active Substance: MAGNESIUM OXIDE
     Indication: PRODUCT USED FOR UNKNOWN INDICATION
     Dosage: 400 MG, BID
     Route: 048
  6. AUGMENTIN [Concomitant]
     Active Substance: AMOXICILLIN\CLAVULANATE POTASSIUM
     Indication: PRODUCT USED FOR UNKNOWN INDICATION
     Dosage: 500/125 OT
     Route: 048
  7. HYDROCHLOROTHIAZIDE. [Concomitant]
     Active Substance: HYDROCHLOROTHIAZIDE
     Indication: PRODUCT USED FOR UNKNOWN INDICATION
     Dosage: 12.5 MG, QD
     Route: 048

REACTIONS (24)
  - Acute kidney injury [Fatal]
  - Procalcitonin increased [Unknown]
  - Blood phosphorus increased [Unknown]
  - Jaundice cholestatic [Fatal]
  - Staphylococcal sepsis [Unknown]
  - Septic shock [Unknown]
  - Tachycardia [Unknown]
  - Prothrombin time ratio increased [Unknown]
  - Leukocytosis [Unknown]
  - Platelet count decreased [Unknown]
  - Renal failure [Fatal]
  - Tachypnoea [Unknown]
  - Prothrombin time prolonged [Unknown]
  - Neutrophil percentage increased [Unknown]
  - Monocyte count increased [Unknown]
  - Lymphocyte percentage decreased [Unknown]
  - Neutrophil count increased [Unknown]
  - Asthenia [Unknown]
  - Urinary tract infection [Fatal]
  - Mental impairment [Unknown]
  - Anion gap increased [Unknown]
  - Decreased appetite [Unknown]
  - Venous oxygen partial pressure decreased [Unknown]
  - Eosinophil percentage decreased [Unknown]

NARRATIVE: CASE EVENT DATE: 20160212
